FAERS Safety Report 5484491-3 (Version None)
Quarter: 2007Q4

REPORT INFORMATION
  Report Type: 
  Country: None (occurrence: None)
  Receive Date: 20071009
  Receipt Date: 20070925
  Transmission Date: 20080405
  Serious: Yes (Congenital Anomaly)
  Sender: FDA-Public Use
  Company Number: CHPA2007US10264

PATIENT
  Sex: Female

DRUGS (1)
  1. EXCEDRIN MIGRAINE (NCH)(CAFFEINE CITRATE, ACETYLSALICYLIC ACID, ACETAM [Suspect]
     Dosage: TRANSPLACENTAL
     Route: 064

REACTIONS (4)
  - CONGENITAL ANOMALY [None]
  - DRUG EXPOSURE DURING PREGNANCY [None]
  - SPINA BIFIDA [None]
  - TETHERED CORD SYNDROME [None]
